FAERS Safety Report 5004649-7 (Version None)
Quarter: 2006Q2

REPORT INFORMATION
  Report Type: 
  Country: None (occurrence: None)
  Receive Date: 20060517
  Receipt Date: 20060509
  Transmission Date: 20061013
  Serious: Yes (Hospitalization)
  Sender: FDA-Public Use
  Company Number: IT-BRISTOL-MYERS SQUIBB COMPANY-13380183

PATIENT
  Age: 75 Year
  Sex: Male

DRUGS (3)
  1. ERBITUX [Suspect]
     Indication: COLORECTAL CANCER
     Route: 042
     Dates: start: 20060201, end: 20060322
  2. IRINOTECAN [Suspect]
     Indication: COLORECTAL CANCER
     Dates: start: 20060130, end: 20060314
  3. FLUOROURACIL [Suspect]
     Indication: COLORECTAL CANCER
     Dates: start: 20060130, end: 20060314

REACTIONS (2)
  - ACUTE RESPIRATORY FAILURE [None]
  - INTERSTITIAL LUNG DISEASE [None]
